FAERS Safety Report 5834226-7 (Version None)
Quarter: 2008Q3

REPORT INFORMATION
  Report Type: 
  Country: None (occurrence: None)
  Receive Date: 20080805
  Receipt Date: 20080728
  Transmission Date: 20090109
  Serious: Yes (Hospitalization)
  Sender: FDA-Public Use
  Company Number: NL-KINGPHARMUSA00001-K200800883

PATIENT
  Age: 41 Year
  Sex: Female

DRUGS (2)
  1. LEVOXYL [Suspect]
     Indication: AUTOIMMUNE THYROIDITIS
     Dosage: 100 MCG, QD
     Route: 048
  2. ZOLADEX [Suspect]
     Indication: METRORRHAGIA
     Route: 058

REACTIONS (5)
  - DRUG INTERACTION [None]
  - FLUSHING [None]
  - HYPERHIDROSIS [None]
  - HYPERTHYROIDISM [None]
  - PARAESTHESIA [None]
